FAERS Safety Report 8020690-4 (Version None)
Quarter: 2012Q1

REPORT INFORMATION
  Report Type: 
  Country: None (occurrence: None)
  Receive Date: 20120103
  Receipt Date: 20111223
  Transmission Date: 20120608
  Serious: Yes (Other)
  Sender: FDA-Public Use
  Company Number: US-ASTRAZENECA-2010SE43583

PATIENT
  Age: 83 Year
  Sex: Female

DRUGS (8)
  1. CRESTOR [Suspect]
     Route: 048
  2. LEXAPRO [Concomitant]
  3. PLAVIX [Concomitant]
  4. DARVOCET-N 50 [Concomitant]
  5. NORVASC [Concomitant]
  6. MOTRIN [Concomitant]
  7. ASPIRIN [Concomitant]
  8. CELEBREX [Concomitant]

REACTIONS (9)
  - PHLEBITIS [None]
  - OSTEOARTHRITIS [None]
  - VENOUS THROMBOSIS LIMB [None]
  - BLOOD TRIGLYCERIDES INCREASED [None]
  - DRUG DOSE OMISSION [None]
  - EPISTAXIS [None]
  - SYNOVIAL CYST [None]
  - THROMBOSIS [None]
  - BLOOD CHOLESTEROL ABNORMAL [None]
